FAERS Safety Report 24453663 (Version 2)
Quarter: 2024Q4

REPORT INFORMATION
  Report Type: Report from Study
  Country: US (occurrence: US)
  Receive Date: 20241017
  Receipt Date: 20241018
  Transmission Date: 20250114
  Serious: No
  Sender: ROCHE
  Company Number: US-ROCHE-3202092

PATIENT
  Age: 65 Year
  Sex: Female

DRUGS (2)
  1. RITUXAN [Suspect]
     Active Substance: RITUXIMAB
     Indication: Microscopic polyangiitis
     Dosage: DOS:  18/MAY/2018, 27/SEP/2022, 11/APR/2023, 25/APR/2023, 30/MAY/2023, 10/OCT/2023, 24/OCT/2023, 23/
     Route: 042
     Dates: end: 20190730
  2. RITUXAN [Suspect]
     Active Substance: RITUXIMAB
     Indication: Bone density abnormal

REACTIONS (2)
  - Off label use [Unknown]
  - No adverse event [Unknown]
